FAERS Safety Report 20050421 (Version 2)
Quarter: 2021Q4

REPORT INFORMATION
  Report Type: Spontaneous
  Country: US (occurrence: US)
  Receive Date: 20211109
  Receipt Date: 20211122
  Transmission Date: 20220303
  Serious: Yes (Other)
  Sender: FDA-Public Use
  Company Number: US-ALLERGAN-2137343US

PATIENT
  Sex: Female

DRUGS (1)
  1. LILETTA [Suspect]
     Active Substance: LEVONORGESTREL
     Indication: Contraception
     Dosage: 52 MG, SINGLE
     Route: 015
     Dates: start: 20200312, end: 20210915

REACTIONS (4)
  - Abortion spontaneous incomplete [Unknown]
  - Device expulsion [Recovered/Resolved]
  - Pregnancy [Unknown]
  - Drug ineffective [Unknown]
